FAERS Safety Report 18174343 (Version 4)
Quarter: 2021Q2

REPORT INFORMATION
  Report Type: Report from Study
  Country: CA (occurrence: CA)
  Receive Date: 20200820
  Receipt Date: 20210522
  Transmission Date: 20210717
  Serious: Yes (Other)
  Sender: FDA-Public Use
  Company Number: NVSC2020CA227741

PATIENT
  Age: 35 Year
  Sex: Female

DRUGS (5)
  1. REVOLADE [Suspect]
     Active Substance: ELTROMBOPAG OLAMINE
     Dosage: 75 MG, QD
     Route: 048
     Dates: start: 20201113
  2. COLACE [Concomitant]
     Active Substance: DOCUSATE SODIUM
     Indication: PRODUCT USED FOR UNKNOWN INDICATION
     Dosage: UNK
     Route: 065
  3. REVOLADE [Suspect]
     Active Substance: ELTROMBOPAG OLAMINE
     Indication: IMMUNE THROMBOCYTOPENIA
     Dosage: 75 MG (STRENGTH: 25?50 MG)
     Route: 048
     Dates: start: 20200712
  4. SENOKOT [Concomitant]
     Active Substance: SENNOSIDES
     Indication: PRODUCT USED FOR UNKNOWN INDICATION
     Dosage: UNK
     Route: 065
  5. FERRIC SULFATE [Concomitant]
     Active Substance: FERRIC SULFATE
     Indication: PRODUCT USED FOR UNKNOWN INDICATION
     Dosage: UNK
     Route: 065

REACTIONS (8)
  - Swelling face [Recovered/Resolved]
  - Toothache [Recovered/Resolved]
  - Haemorrhage [Unknown]
  - Product dose omission issue [Unknown]
  - Tooth impacted [Unknown]
  - Tooth abscess [Recovered/Resolved]
  - Contusion [Unknown]
  - Platelet count abnormal [Recovered/Resolved]

NARRATIVE: CASE EVENT DATE: 20201214
